FAERS Safety Report 9610876 (Version 1)
Quarter: 2013Q4

REPORT INFORMATION
  Report Type: Spontaneous
  Country: US (occurrence: US)
  Receive Date: 20131009
  Receipt Date: 20131009
  Transmission Date: 20140711
  Serious: Yes (Disabling, Other)
  Sender: FDA-Public Use
  Company Number: US-CELGENEUS-163-POMAL-13100654

PATIENT
  Age: 71 Year
  Sex: Female
  Weight: 65.38 kg

DRUGS (1)
  1. POMALYST [Suspect]
     Indication: PLASMA CELL MYELOMA
     Dosage: 2 MILLIGRAM
     Route: 048
     Dates: start: 20130318

REACTIONS (3)
  - Generalised erythema [Unknown]
  - Skin ulcer [Unknown]
  - Local swelling [Unknown]
